FAERS Safety Report 9747052 (Version 4)
Quarter: 2014Q1

REPORT INFORMATION
  Report Type: Spontaneous
  Country: AU (occurrence: AU)
  Receive Date: 20131211
  Receipt Date: 20140207
  Transmission Date: 20141002
  Serious: Yes (Other)
  Sender: FDA-Public Use
  Company Number: ALCN2013AU006071

PATIENT
  Sex: 0
  Weight: 47 kg

DRUGS (8)
  1. BSS [Suspect]
     Dosage: 1 DF, UNK
     Route: 065
     Dates: end: 20131113
  2. BSS [Suspect]
     Dosage: 1 DF, UNK
     Route: 065
     Dates: start: 20131113, end: 20131113
  3. CYCLOPENTOLATE HCL [Suspect]
     Dosage: 1 DF, UNK
     Route: 047
     Dates: start: 20131113, end: 20131113
  4. TROPICAMIDE [Concomitant]
     Dosage: 1 DF, UNK
     Route: 047
     Dates: start: 20131113, end: 20131113
  5. PHENYLEPHRINE HYDROCHLORIDE [Concomitant]
     Dosage: 1 DF, UNK
     Route: 047
     Dates: start: 20131113, end: 20131113
  6. BETADINE [Concomitant]
     Dosage: 1 DF, UNK
     Route: 047
     Dates: start: 20131113, end: 20131113
  7. ADRENALINE [Concomitant]
     Dosage: 1 DF, UNK
     Route: 065
     Dates: start: 20131113, end: 20131113
  8. CEPHAZOLIN [Concomitant]
     Dosage: 1 DF, UNK
     Route: 065
     Dates: start: 20131113, end: 20131113

REACTIONS (1)
  - Toxic anterior segment syndrome [Recovered/Resolved]
